FAERS Safety Report 10270372 (Version 1)
Quarter: 2014Q2

REPORT INFORMATION
  Report Type: Spontaneous
  Country: DE (occurrence: None)
  Receive Date: 20140627
  Receipt Date: 20140627
  Transmission Date: 20141212
  Serious: Yes (Hospitalization, Other)
  Sender: FDA-Public Use
  Company Number: 2014MPI00731

PATIENT
  Age: 64 Year
  Sex: Male

DRUGS (7)
  1. ADCETRIS (BRENTUXIMAB VEDOTIN) INJECTION [Suspect]
     Indication: ANAPLASTIC LARGE CELL LYMPHOMA T- AND NULL-CELL TYPES
     Route: 042
     Dates: start: 201402, end: 201402
  2. PREDNISOLONE (PREDNISOLONE ACETATE) [Concomitant]
  3. ACETAMINOPHEN (ACETAMINOPHEN) [Concomitant]
  4. DIMETINDENE (DIMETINDENE) [Concomitant]
  5. RANITIDINE (RANITIDINE HYDROCHLORIDE) [Concomitant]
  6. PETHIDINE (PETHIDINE HYDROCHLORIDE) [Concomitant]
  7. MEROPENEM (MEROPENEM TRIHYDRATE) [Concomitant]

REACTIONS (5)
  - Cytokine release syndrome [None]
  - Oliguria [None]
  - Hypotension [None]
  - Lactic acidosis [None]
  - Blood lactate dehydrogenase increased [None]
